FAERS Safety Report 19875095 (Version 1)
Quarter: 2021Q3

REPORT INFORMATION
  Report Type: Report from Study
  Country: CA (occurrence: CA)
  Receive Date: 20210923
  Receipt Date: 20210923
  Transmission Date: 20211014
  Serious: Yes (Other)
  Sender: FDA-Public Use
  Company Number: CA-JNJFOC-20210604230

PATIENT
  Sex: Female

DRUGS (9)
  1. FUROSEMIDE. [Concomitant]
     Active Substance: FUROSEMIDE
  2. MINOCYCLINE [Concomitant]
     Active Substance: MINOCYCLINE HYDROCHLORIDE
  3. SELEXIPAG [Suspect]
     Active Substance: SELEXIPAG
     Indication: PULMONARY HYPERTENSION
     Route: 048
     Dates: start: 20210301, end: 20210913
  4. MACITENTAN [Suspect]
     Active Substance: MACITENTAN
     Indication: PULMONARY HYPERTENSION
     Route: 048
     Dates: start: 20200129
  5. ADCIRCA [Concomitant]
     Active Substance: TADALAFIL
  6. IRON [Concomitant]
     Active Substance: IRON
     Indication: NUTRITIONAL SUPPLEMENTATION
  7. VYVANSE [Concomitant]
     Active Substance: LISDEXAMFETAMINE DIMESYLATE
  8. ELIQUIS [Concomitant]
     Active Substance: APIXABAN
  9. AMIODARONE [Concomitant]
     Active Substance: AMIODARONE

REACTIONS (2)
  - Dyspnoea [Not Recovered/Not Resolved]
  - Pulmonary hypertension [Unknown]
